APPROVED DRUG PRODUCT: ORAP
Active Ingredient: PIMOZIDE
Strength: 1MG **Federal Register determination that product was not discontinued or withdrawn for safety or effectiveness reasons**
Dosage Form/Route: TABLET;ORAL
Application: N017473 | Product #003
Applicant: TEVA PHARMACEUTICALS USA INC
Approved: Aug 27, 1997 | RLD: Yes | RS: No | Type: DISCN